FAERS Safety Report 9146642 (Version 1)
Quarter: 2013Q1

REPORT INFORMATION
  Report Type: Spontaneous
  Country: US (occurrence: None)
  Receive Date: 20130228
  Receipt Date: 20130228
  Transmission Date: 20140127
  Serious: No
  Sender: FDA-Public Use
  Company Number: None

PATIENT
  Age: 68 Year
  Sex: Female

DRUGS (1)
  1. ONXOL [Suspect]
     Indication: OVARIAN CANCER
     Dosage: 120 MG X1 IV
     Route: 042
     Dates: start: 20130113

REACTIONS (4)
  - Cough [None]
  - Flushing [None]
  - Erythema [None]
  - Chest discomfort [None]
